FAERS Safety Report 9375942 (Version 1)
Quarter: 2013Q2

REPORT INFORMATION
  Report Type: Spontaneous
  Country: CA (occurrence: CA)
  Receive Date: 20130628
  Receipt Date: 20130628
  Transmission Date: 20140414
  Serious: Yes (Other)
  Sender: FDA-Public Use
  Company Number: CA-RB-055400-13

PATIENT
  Age: 0 None
  Sex: Male

DRUGS (9)
  1. SUBOXONE TABLET [Suspect]
     Route: 064
     Dates: start: 20120904, end: 20121217
  2. SUBOXONE TABLET [Suspect]
     Indication: DRUG DEPENDENCE
     Route: 063
     Dates: start: 2013
  3. SUBUTEX [Suspect]
     Indication: DRUG DEPENDENCE
     Route: 064
     Dates: start: 20121217, end: 20130316
  4. TECTA [Suspect]
     Indication: GASTROOESOPHAGEAL REFLUX DISEASE
     Route: 064
     Dates: start: 2012, end: 20130316
  5. TECTA [Suspect]
     Route: 063
     Dates: start: 2013
  6. CYMBALTA [Suspect]
     Indication: DEPRESSION
     Route: 064
     Dates: start: 2012, end: 20130316
  7. CYMBALTA [Suspect]
     Route: 063
     Dates: start: 2013
  8. NICOTINE [Suspect]
     Indication: PRODUCT USED FOR UNKNOWN INDICATION
     Dosage: 10 CIGARETTES DAILY
     Route: 064
     Dates: start: 2012, end: 2013
  9. HYDROMORPHONE [Suspect]
     Indication: PRODUCT USED FOR UNKNOWN INDICATION
     Route: 064
     Dates: start: 20120904, end: 2012

REACTIONS (5)
  - Foetal exposure during pregnancy [Recovered/Resolved]
  - Premature baby [Recovered/Resolved]
  - Low birth weight baby [Unknown]
  - Drug withdrawal syndrome neonatal [Unknown]
  - Exposure during breast feeding [Unknown]
